FAERS Safety Report 5574844-7 (Version None)
Quarter: 2007Q4

REPORT INFORMATION
  Report Type: 
  Country: None (occurrence: None)
  Receive Date: 20071221
  Receipt Date: 20071221
  Transmission Date: 20080405
  Serious: Yes (Other)
  Sender: FDA-Public Use
  Company Number: None

PATIENT
  Sex: Female
  Weight: 74.25 kg

DRUGS (1)
  1. CARBOPLATIN [Suspect]

REACTIONS (3)
  - CHEST DISCOMFORT [None]
  - GROIN PAIN [None]
  - PRURITUS GENERALISED [None]
